FAERS Safety Report 18927581 (Version 1)
Quarter: 2021Q1

REPORT INFORMATION
  Report Type: Spontaneous
  Country: CH (occurrence: CH)
  Receive Date: 20210223
  Receipt Date: 20210223
  Transmission Date: 20210420
  Serious: Yes (Life-Threatening, Hospitalization)
  Sender: FDA-Public Use
  Company Number: CH-ROCHE-2774604

PATIENT
  Age: 51 Year
  Sex: Female

DRUGS (4)
  1. TEMESTA EXPIDET [Concomitant]
     Active Substance: LORAZEPAM
     Dosage: AS NECESSARY
     Route: 048
  2. FORTECORTIN [Concomitant]
     Active Substance: DEXAMETHASONE
     Route: 048
  3. XELODA [Suspect]
     Active Substance: CAPECITABINE
     Indication: PRODUCT USED FOR UNKNOWN INDICATION
     Route: 048
     Dates: start: 202011, end: 20201207
  4. ONDANSETRON TEVA [Concomitant]
     Active Substance: ONDANSETRON
     Dosage: AS NECESSARY
     Route: 048

REACTIONS (3)
  - Hyponatraemia [Recovering/Resolving]
  - Seizure [Recovering/Resolving]
  - Thrombocytopenia [Recovering/Resolving]

NARRATIVE: CASE EVENT DATE: 20201207
